FAERS Safety Report 8172790-6 (Version None)
Quarter: 2012Q1

REPORT INFORMATION
  Report Type: 
  Country: None (occurrence: None)
  Receive Date: 20120223
  Receipt Date: 20120209
  Transmission Date: 20120608
  Serious: Yes (Life-Threatening, Other)
  Sender: FDA-Public Use
  Company Number: 2012P1004759

PATIENT
  Age: 75 Year
  Sex: Male

DRUGS (21)
  1. RIBOFLAVIN [Concomitant]
  2. PANTHENOL [Concomitant]
  3. MELOXICAM [Concomitant]
  4. THIAMINE HYDROCHLORIDE [Concomitant]
  5. AMLODIPINE BESYLATE [Concomitant]
  6. MOMETASONE FUROATE [Concomitant]
  7. CLINDAMYCIN [Concomitant]
  8. ERGOCALCIFEROL [Concomitant]
  9. WARFARIN SODIUM [Suspect]
     Indication: THROMBOSIS PROPHYLAXIS
  10. ATORVASTATIN CALCIUM [Concomitant]
  11. CLONAZEPAM [Concomitant]
  12. PERINDOPRIL ERBUMINE [Concomitant]
  13. ASCORBIC ACID [Concomitant]
  14. COPPER [Concomitant]
  15. FOLIC ACID [Concomitant]
  16. ACETAMINOPHEN [Concomitant]
  17. GABAPENTIN [Concomitant]
  18. BETACAROTENE [Concomitant]
  19. RETINOL [Concomitant]
  20. FRAGMIN [Suspect]
     Indication: THROMBOSIS PROPHYLAXIS
     Dosage: 5,000 IU;QD;SC
     Route: 058
     Dates: start: 20120111, end: 20120114
  21. NICOTINAMINE [Concomitant]

REACTIONS (2)
  - PULMONARY EMBOLISM [None]
  - APPARENT LIFE THREATENING EVENT [None]
